FAERS Safety Report 4303434-9 (Version None)
Quarter: 2004Q1

REPORT INFORMATION
  Report Type: 
  Country: None (occurrence: None)
  Receive Date: 20040223
  Receipt Date: 20020122
  Transmission Date: 20041129
  Serious: Yes (Other)
  Sender: FDA-Public Use
  Company Number: KII-2002-0007380

PATIENT
  Age: 90 Year
  Sex: Female

DRUGS (1)
  1. OXYCONTIN [Suspect]
     Indication: PAIN
     Dosage: 10 MG,

REACTIONS (1)
  - CEREBROVASCULAR ACCIDENT [None]
